FAERS Safety Report 17926262 (Version 1)
Quarter: 2020Q3

REPORT INFORMATION
  Report Type: Spontaneous
  Country: CN (occurrence: CN)
  Receive Date: 20200622
  Receipt Date: 20200622
  Transmission Date: 20201105
  Serious: Yes (Life-Threatening, Hospitalization)
  Sender: FDA-Public Use
  Company Number: CN-CELGENEUS-CHN-20200605115

PATIENT
  Age: 63 Year
  Sex: Male
  Weight: 56 kg

DRUGS (16)
  1. COMPOUND PLATYCODON [Concomitant]
     Indication: COUGH
     Dosage: 2 PIECES
     Route: 048
     Dates: start: 20200610
  2. CARBOPLATIN. [Suspect]
     Active Substance: CARBOPLATIN
     Dosage: 397.5 MILLIGRAM
     Route: 041
     Dates: start: 20200611, end: 20200611
  3. SHENG XUE BAO MIXTURE [Concomitant]
     Indication: ANAEMIA
     Dosage: 45 MILLILITER
     Route: 048
     Dates: start: 20200610
  4. XUESAITONG [Concomitant]
     Active Substance: PANAX NOTOGINSENG ROOT
     Indication: THROMBOSIS PROPHYLAXIS
     Dosage: 400 MILLIGRAM
     Route: 041
     Dates: start: 20200611
  5. SERPLULIMAB. [Suspect]
     Active Substance: SERPLULIMAB
     Indication: SQUAMOUS CELL CARCINOMA OF LUNG
     Dosage: 252 MILLIGRAM
     Route: 041
     Dates: start: 20200521, end: 20200611
  6. OMEPRAZOLE SODIUM [Concomitant]
     Active Substance: OMEPRAZOLE SODIUM
     Indication: PROPHYLAXIS OF NAUSEA AND VOMITING
     Dosage: 40 MILLIGRAM
     Route: 041
     Dates: start: 20200611
  7. AMBROXOL HYDROCHLORIDE SODIUM CHLORIDE [Concomitant]
     Indication: PRODUCTIVE COUGH
  8. HUMAN ALBUMIN [Concomitant]
     Active Substance: ALBUMIN HUMAN
     Indication: SUPPLEMENTATION THERAPY
     Dosage: 10 GRAM
     Route: 041
     Dates: start: 20200611
  9. AMBROXOL HYDROCHLORIDE SODIUM CHLORIDE [Concomitant]
     Indication: COUGH
     Route: 041
     Dates: start: 20200611, end: 20200611
  10. CIMETIDINE [Concomitant]
     Active Substance: CIMETIDINE
     Indication: PROPHYLAXIS OF NAUSEA AND VOMITING
     Dosage: 200 MILLIGRAM
     Route: 041
     Dates: start: 20200611
  11. ABRAXANE [Suspect]
     Active Substance: PACLITAXEL
     Indication: SQUAMOUS CELL CARCINOMA OF LUNG
     Dosage: 163.1 MILLIGRAM
     Route: 041
     Dates: start: 20200521, end: 20200601
  12. COMPOUND PLATYCODON [Concomitant]
     Indication: PRODUCTIVE COUGH
  13. VITAMIN B6 [Concomitant]
     Active Substance: PYRIDOXINE HYDROCHLORIDE
     Indication: NUTRITIONAL SUPPLEMENTATION
     Dosage: 200 MILLIGRAM
     Route: 041
     Dates: start: 20200611
  14. OXYCODONE HYDROCHLORIDE. [Concomitant]
     Active Substance: OXYCODONE HYDROCHLORIDE
     Indication: CHEST PAIN
     Dosage: 40 MILLIGRAM
     Route: 048
     Dates: start: 20200610
  15. CARBOPLATIN. [Suspect]
     Active Substance: CARBOPLATIN
     Indication: SQUAMOUS CELL CARCINOMA OF LUNG
     Dosage: 405.3 MILLIGRAM
     Route: 041
     Dates: start: 20200521, end: 20200521
  16. TROPISETRON HYDROCHLORIDE [Concomitant]
     Active Substance: TROPISETRON HYDROCHLORIDE
     Indication: PROPHYLAXIS OF NAUSEA AND VOMITING
     Dosage: 5 MILLIGRAM
     Route: 041
     Dates: start: 20200611

REACTIONS (1)
  - Pneumonia [Not Recovered/Not Resolved]

NARRATIVE: CASE EVENT DATE: 20200614
